FAERS Safety Report 7214931-0 (Version None)
Quarter: 2011Q1

REPORT INFORMATION
  Report Type: 
  Country: None (occurrence: None)
  Receive Date: 20110107
  Receipt Date: 20100517
  Transmission Date: 20110831
  Serious: No
  Sender: FDA-Public Use
  Company Number: A0860502A

PATIENT
  Sex: Male

DRUGS (3)
  1. LOVAZA [Suspect]
     Route: 048
  2. NSAID [Suspect]
     Route: 065
  3. ULORIC [Concomitant]

REACTIONS (3)
  - GOUT [None]
  - PAIN IN EXTREMITY [None]
  - DRUG ADMINISTRATION ERROR [None]
